FAERS Safety Report 6600265-1 (Version None)
Quarter: 2010Q1

REPORT INFORMATION
  Report Type: 
  Country: None (occurrence: None)
  Receive Date: 20100217
  Receipt Date: 20100210
  Transmission Date: 20100710
  Serious: Yes (Hospitalization)
  Sender: FDA-Public Use
  Company Number: ALL1-2010-00638

PATIENT
  Age: 62 Year
  Sex: Male
  Weight: 65.8 kg

DRUGS (1)
  1. FOSRENOL [Suspect]
     Indication: HYPERPHOSPHATAEMIA
     Dosage: TWO UNKNOWN MG, TABLETS WITH MEALS, ORAL
     Route: 048
     Dates: start: 20090601

REACTIONS (2)
  - MUSCULAR WEAKNESS [None]
  - PNEUMONIA [None]
